FAERS Safety Report 4921386-5 (Version None)
Quarter: 2006Q1

REPORT INFORMATION
  Report Type: 
  Country: None (occurrence: None)
  Receive Date: 20060222
  Receipt Date: 20060222
  Transmission Date: 20060701
  Serious: Yes (Hospitalization, Other)
  Sender: FDA-Public Use
  Company Number: None

PATIENT
  Sex: Male
  Weight: 109 kg

DRUGS (5)
  1. DACARBAZINE [Suspect]
     Indication: SARCOMA
     Dosage: 1590 MG
     Dates: start: 20060207, end: 20060209
  2. DOXORUBICIN HCL [Suspect]
     Dosage: 141 MG
     Dates: end: 20060209
  3. G-CSF  (FILGRASTIM, AMGEN) [Suspect]
  4. IFOSFAMIDE [Suspect]
     Dates: end: 20060209
  5. MESNA [Suspect]
     Dosage: 23520
     Dates: end: 20060210

REACTIONS (4)
  - DEHYDRATION [None]
  - DYSPEPSIA [None]
  - FLUID INTAKE REDUCED [None]
  - VOMITING [None]
